FAERS Safety Report 9485010 (Version 1)
Quarter: 2013Q3

REPORT INFORMATION
  Report Type: Spontaneous
  Country: US (occurrence: US)
  Receive Date: 20130828
  Receipt Date: 20130828
  Transmission Date: 20140515
  Serious: No
  Sender: FDA-Public Use
  Company Number: US-ABBOTT-13P-163-1128835-00

PATIENT
  Age: 57 Year
  Sex: Male
  Weight: 81.72 kg

DRUGS (6)
  1. ANDROGEL [Suspect]
     Indication: BLOOD TESTOSTERONE DECREASED
     Dosage: 40.5 MILLIGRAMS DAILY
     Route: 061
     Dates: start: 2012
  2. METOPROLOL [Concomitant]
     Indication: HYPERTENSION
  3. AVAPRO [Concomitant]
     Indication: HYPERTENSION
  4. ALLOPURINOL [Concomitant]
     Indication: GOUT
  5. LANSOPRAZOLE [Concomitant]
     Indication: PRODUCT USED FOR UNKNOWN INDICATION
  6. ACYCLOVIR [Concomitant]
     Indication: HERPES SIMPLEX

REACTIONS (1)
  - Blood testosterone decreased [Not Recovered/Not Resolved]
